FAERS Safety Report 9191312 (Version 5)
Quarter: 2014Q1

REPORT INFORMATION
  Report Type: Report from Study
  Country: JP (occurrence: JP)
  Receive Date: 20130326
  Receipt Date: 20140224
  Transmission Date: 20141002
  Serious: Yes (Life-Threatening, Hospitalization)
  Sender: FDA-Public Use
  Company Number: JP-PFIZER INC-2013094003

PATIENT
  Age: 64 Year
  Sex: Female
  Weight: 35 kg

DRUGS (14)
  1. REVATIO [Suspect]
     Indication: PULMONARY ARTERIAL HYPERTENSION
     Dosage: 20 MG, 2X/DAY
     Route: 048
     Dates: start: 20081106, end: 20090321
  2. ALPROSTADIL [Concomitant]
     Indication: SCLERODERMA
     Dosage: UNK
     Route: 042
     Dates: start: 20090218, end: 20090301
  3. JUVELA [Concomitant]
     Indication: SCLERODERMA
     Dosage: UNK
     Route: 048
     Dates: end: 20090325
  4. BIOFERMIN [Concomitant]
     Indication: SCLERODERMA
     Dosage: UNK
     Route: 048
     Dates: end: 20090325
  5. BERAPROST SODIUM [Concomitant]
     Indication: PULMONARY HYPERTENSION
     Dosage: UNK
     Route: 048
     Dates: end: 20090325
  6. GASCON [Concomitant]
     Indication: SCLERODERMA
     Dosage: UNK
     Route: 048
     Dates: start: 20090213, end: 20090325
  7. LIMAPROST [Concomitant]
     Indication: PULMONARY HYPERTENSION
     Dosage: UNK
     Route: 048
     Dates: start: 20090213, end: 20090325
  8. ASPIRIN [Concomitant]
     Indication: PULMONARY HYPERTENSION
     Dosage: UNK
     Route: 048
  9. ALDACTONE [Concomitant]
     Indication: PULMONARY HYPERTENSION
     Dosage: UNK
     Route: 048
  10. PRORENAL [Concomitant]
     Indication: SCLERODERMA
     Dosage: UNK
     Route: 048
  11. OMEPRAZOLE [Concomitant]
     Indication: SCLERODERMA
     Dosage: UNK
     Route: 048
  12. BONALON [Concomitant]
     Indication: OSTEOPOROSIS
     Dosage: UNK
     Route: 048
  13. TRACLEER [Concomitant]
     Indication: PULMONARY HYPERTENSION
     Dosage: UNK
     Route: 048
  14. FUROSEMIDE [Concomitant]
     Indication: PULMONARY HYPERTENSION
     Dosage: UNK
     Route: 048

REACTIONS (2)
  - Cardiac failure [Recovered/Resolved with Sequelae]
  - Urinary tract infection [Recovering/Resolving]
